FAERS Safety Report 6527347-7 (Version None)
Quarter: 2009Q4

REPORT INFORMATION
  Report Type: 
  Country: None (occurrence: None)
  Receive Date: 20091229
  Receipt Date: 20091222
  Transmission Date: 20100525
  Serious: Yes (Death)
  Sender: FDA-Public Use
  Company Number: OMPQ-NO-0912S-1043

PATIENT
  Age: 49 Year
  Sex: Female
  Weight: 63 kg

DRUGS (1)
  1. OMNIPAQUE 350 [Suspect]
     Indication: BREAST CANCER
     Dosage: 50 ML, SINGLE DOSE, IV
     Route: 042
     Dates: start: 20091013, end: 20091013

REACTIONS (1)
  - CARDIO-RESPIRATORY ARREST [None]
